FAERS Safety Report 9395975 (Version 2)
Quarter: 2013Q3

REPORT INFORMATION
  Report Type: Spontaneous
  Country: US (occurrence: US)
  Receive Date: 20130711
  Receipt Date: 20130829
  Transmission Date: 20140515
  Serious: Yes (Other)
  Sender: FDA-Public Use
  Company Number: US-PFIZER INC-2013203435

PATIENT
  Age: 47 Year
  Sex: Female

DRUGS (1)
  1. CHANTIX [Suspect]
     Dosage: STARTING PACK AND 1MG CONTINUING MONTH PACK
     Dates: start: 20070629, end: 20090215

REACTIONS (2)
  - Suicide attempt [Unknown]
  - Dizziness [Unknown]
